FAERS Safety Report 7996852-9 (Version None)
Quarter: 2011Q4

REPORT INFORMATION
  Report Type: 
  Country: None (occurrence: None)
  Receive Date: 20111221
  Receipt Date: 20111209
  Transmission Date: 20120403
  Serious: No
  Sender: FDA-Public Use
  Company Number: US-BAYER-2011-040870

PATIENT
  Age: 29 Year
  Sex: Female

DRUGS (1)
  1. MIRENA [Suspect]
     Indication: CONTRACEPTION
     Dosage: 20 MCG/24HR, CONT
     Route: 015
     Dates: start: 20110422, end: 20110601

REACTIONS (10)
  - OVARIAN CYST [None]
  - MUSCLE SPASMS [None]
  - PREGNANCY WITH CONTRACEPTIVE DEVICE [None]
  - WEIGHT INCREASED [None]
  - BREAST TENDERNESS [None]
  - VISION BLURRED [None]
  - DIZZINESS [None]
  - MENORRHAGIA [None]
  - ABDOMINAL DISTENSION [None]
  - HEADACHE [None]
